FAERS Safety Report 8848061 (Version 1)
Quarter: 2012Q4

REPORT INFORMATION
  Report Type: 
  Country: US (occurrence: US)
  Receive Date: 20121018
  Receipt Date: 20121018
  Transmission Date: 20130627
  Serious: Yes (Hospitalization)
  Sender: FDA-Public Use
  Company Number: US-ROCHE-1140001

PATIENT
  Sex: Male

DRUGS (4)
  1. PROTROPIN [Suspect]
     Indication: DWARFISM
     Dosage: 0.3 mg/kg/wk
     Route: 058
     Dates: start: 19920403
  2. PROTROPIN [Suspect]
     Dosage: 0.3 mg/kg per week
     Route: 058
  3. PROTROPIN [Suspect]
     Route: 058
  4. PROTROPIN [Suspect]
     Dosage: 0.56 cc
     Route: 058

REACTIONS (3)
  - Idiopathic thrombocytopenic purpura [Unknown]
  - Bronchitis [Unknown]
  - Drug hypersensitivity [Unknown]
